FAERS Safety Report 16132872 (Version 1)
Quarter: 2019Q1

REPORT INFORMATION
  Report Type: Spontaneous
  Country: HR (occurrence: HR)
  Receive Date: 20190329
  Receipt Date: 20190329
  Transmission Date: 20190418
  Serious: Yes (Other)
  Sender: FDA-Public Use
  Company Number: HR-SA-2019SA081470

PATIENT
  Age: 36 Year
  Sex: Female
  Weight: 60 kg

DRUGS (1)
  1. CLOMIFENE CITRATE [Suspect]
     Active Substance: CLOMIPHENE
     Indication: ASSISTED FERTILISATION
     Dosage: 100 MG, QD, 2 TABLETS DAILY AT THE SAME TIME
     Route: 048
     Dates: start: 20190225

REACTIONS (7)
  - Dry eye [Unknown]
  - Fatigue [Unknown]
  - Back pain [Unknown]
  - Headache [Unknown]
  - Blood pressure increased [Unknown]
  - Adnexa uteri pain [Unknown]
  - Tinnitus [Unknown]

NARRATIVE: CASE EVENT DATE: 20190225
